FAERS Safety Report 6097855-4 (Version None)
Quarter: 2009Q1

REPORT INFORMATION
  Report Type: 
  Country: None (occurrence: None)
  Receive Date: 20090227
  Receipt Date: 20090219
  Transmission Date: 20090719
  Serious: Yes (Hospitalization)
  Sender: FDA-Public Use
  Company Number: HR-ABBOTT-09P-216-0558191-00

PATIENT
  Age: 52 Year
  Sex: Male
  Weight: 56 kg

DRUGS (14)
  1. ZEMPLAR [Suspect]
     Indication: HYPERPARATHYROIDISM
     Dates: start: 20080131, end: 20080327
  2. ZEMPLAR [Suspect]
     Dates: start: 20080327
  3. NIFEDIPINE [Concomitant]
     Indication: HYPERTENSION
     Route: 048
     Dates: start: 20070320, end: 20080815
  4. NIFEDIPINE [Concomitant]
     Route: 048
     Dates: start: 20080816, end: 20081217
  5. NIFEDIPINE [Concomitant]
     Route: 048
     Dates: start: 20081218
  6. RANITIDINE HCL [Concomitant]
     Indication: GASTRITIS
     Route: 048
     Dates: start: 20060323
  7. ATORVASTATIN [Concomitant]
     Indication: HYPERLIPIDAEMIA
     Route: 048
     Dates: start: 20070818
  8. SEVELAMER HYDROCHLORIDE [Concomitant]
     Indication: HYPERPHOSPHATAEMIA
     Route: 048
     Dates: start: 20080624
  9. SEVELAMER HYDROCHLORIDE [Concomitant]
     Route: 048
     Dates: start: 20080624
  10. BISOPROLOL [Concomitant]
     Indication: MYOCARDIAL INFARCTION
     Route: 048
     Dates: start: 20080816, end: 20081217
  11. BISOPROLOL [Concomitant]
     Route: 048
     Dates: start: 20081218
  12. TRANDOLAPRIL [Concomitant]
     Indication: MYOCARDIAL INFARCTION
     Route: 048
     Dates: start: 20080816
  13. ACETYLSALICYLIC ACID SRT [Concomitant]
     Indication: MYOCARDIAL INFARCTION
     Route: 048
     Dates: start: 20080816, end: 20081217
  14. WARFARIN [Concomitant]
     Indication: EMBOLISM
     Route: 048
     Dates: start: 20081218

REACTIONS (3)
  - CHEST PAIN [None]
  - EMBOLISM [None]
  - MYOCARDIAL INFARCTION [None]
